FAERS Safety Report 16313692 (Version 6)
Quarter: 2020Q3

REPORT INFORMATION
  Report Type: Spontaneous
  Country: US (occurrence: US)
  Receive Date: 20190515
  Receipt Date: 20200710
  Transmission Date: 20201102
  Serious: Yes (Other)
  Sender: FDA-Public Use
  Company Number: US-PFIZER INC-2019203069

PATIENT
  Age: 63 Year
  Sex: Female

DRUGS (1)
  1. XELJANZ [Suspect]
     Active Substance: TOFACITINIB CITRATE
     Indication: RHEUMATOID ARTHRITIS
     Dosage: 5 MG, 2X/DAY
     Route: 048
     Dates: start: 201904, end: 20200630

REACTIONS (5)
  - Product dose omission issue [Unknown]
  - Fall [Unknown]
  - Lower limb fracture [Unknown]
  - Skin discolouration [Unknown]
  - Contusion [Unknown]

NARRATIVE: CASE EVENT DATE: 20190613
